FAERS Safety Report 8163537-8 (Version None)
Quarter: 2012Q1

REPORT INFORMATION
  Report Type: 
  Country: None (occurrence: None)
  Receive Date: 20120224
  Receipt Date: 20120216
  Transmission Date: 20120608
  Serious: Yes (Hospitalization)
  Sender: FDA-Public Use
  Company Number: FR-NOVOPROD-345346

PATIENT
  Age: 75 Year
  Sex: Male

DRUGS (11)
  1. VICTOZA [Suspect]
     Indication: TYPE 2 DIABETES MELLITUS
     Dosage: 0.6 MG, QD
     Route: 058
     Dates: start: 20111203
  2. AUGMENTIN [Concomitant]
     Indication: LUNG DISORDER
     Dates: start: 20111203, end: 20111213
  3. TETRAZEPAM [Concomitant]
     Dosage: 1 DF, QD
     Route: 048
  4. ALMORA [Concomitant]
     Indication: DIABETES MELLITUS
     Dosage: 5 MG, QD
     Route: 048
     Dates: start: 20111203
  5. METFORMIN HCL [Concomitant]
     Indication: DIABETES MELLITUS
     Dosage: 3 MG, QD
     Route: 048
  6. NEBIVOLOL [Concomitant]
     Dosage: ONE DOSE/PO
  7. CRESTOR [Concomitant]
     Dosage: 5 MG, QD
     Route: 048
  8. LYRICA [Concomitant]
     Dosage: 300 MG, QD
     Route: 048
  9. VICTOZA [Suspect]
     Dosage: 1.2 MG, QD
     Route: 058
     Dates: end: 20111216
  10. ASPIRIN [Concomitant]
     Dosage: 75 MG, QD
     Route: 048
  11. LOSARTAN POTASSIUM AND HYDROCHLOROTHIAZIDE [Concomitant]
     Dosage: 125 MG, QD
     Route: 048

REACTIONS (1)
  - DRUG RASH WITH EOSINOPHILIA AND SYSTEMIC SYMPTOMS [None]
